FAERS Safety Report 4825116-7 (Version None)
Quarter: 2005Q4

REPORT INFORMATION
  Report Type: 
  Country: None (occurrence: None)
  Receive Date: 20051109
  Receipt Date: 20051109
  Transmission Date: 20060501
  Serious: Yes (Life-Threatening)
  Sender: FDA-Public Use
  Company Number: None

PATIENT
  Sex: Female

DRUGS (1)
  1. LORTAB [Suspect]
     Indication: PAIN
     Dosage: 15 ML   ONCE   PO
     Route: 048
     Dates: start: 20050808, end: 20050808

REACTIONS (2)
  - APNOEA [None]
  - RESPIRATORY DEPRESSION [None]
